FAERS Safety Report 7804142-X (Version None)
Quarter: 2011Q4

REPORT INFORMATION
  Report Type: 
  Country: None (occurrence: None)
  Receive Date: 20111010
  Receipt Date: 20110923
  Transmission Date: 20120403
  Serious: No
  Sender: FDA-Public Use
  Company Number: PL-ASTELLAS-2011EU002099

PATIENT
  Sex: Male
  Weight: 26 kg

DRUGS (4)
  1. TACROLIMUS [Suspect]
     Indication: DERMATITIS ATOPIC
     Dosage: 0.1 %, PRN
     Route: 061
     Dates: start: 20051207
  2. ZYRTEC [Concomitant]
     Indication: HYPERSENSITIVITY
     Dosage: 5 MG, UNKNOWN/D
     Route: 048
     Dates: start: 20040101
  3. TACROLIMUS [Suspect]
     Dosage: 0.03 %, UID/QD
     Route: 061
     Dates: start: 20051207
  4. PIMECROLIMUS [Concomitant]
     Indication: DERMATITIS ATOPIC
     Dosage: UNK
     Route: 065
     Dates: start: 20051201

REACTIONS (2)
  - OFF LABEL USE [None]
  - TONSILLAR HYPERTROPHY [None]
